FAERS Safety Report 7585798-6 (Version None)
Quarter: 2011Q2

REPORT INFORMATION
  Report Type: 
  Country: None (occurrence: None)
  Receive Date: 20110624
  Receipt Date: 20110610
  Transmission Date: 20111010
  Serious: Yes (Death, Life-Threatening, Hospitalization, Other)
  Sender: FDA-Public Use
  Company Number: 2011MA006675

PATIENT
  Age: 19 Year
  Sex: Female
  Weight: 75 kg

DRUGS (3)
  1. TOPIRAMATE [Concomitant]
  2. VENLAFAXINE HYDROCHLORIDE [Suspect]
     Indication: DEPRESSION
  3. QUETIAPINE [Concomitant]

REACTIONS (16)
  - BLOOD GLUCOSE INCREASED [None]
  - SINUS TACHYCARDIA [None]
  - SOMNOLENCE [None]
  - BRAIN OEDEMA [None]
  - NOSOCOMIAL INFECTION [None]
  - GRAND MAL CONVULSION [None]
  - RHABDOMYOLYSIS [None]
  - RESPIRATORY DISORDER [None]
  - BLOOD POTASSIUM DECREASED [None]
  - METABOLIC ACIDOSIS [None]
  - STUPOR [None]
  - ELECTROCARDIOGRAM QT PROLONGED [None]
  - BLOOD PRESSURE DECREASED [None]
  - MULTIPLE DRUG OVERDOSE [None]
  - CARDIAC FAILURE [None]
  - CARDIOPULMONARY FAILURE [None]
